FAERS Safety Report 9508435 (Version 2)
Quarter: 2014Q1

REPORT INFORMATION
  Report Type: Spontaneous
  Country: US (occurrence: None)
  Receive Date: 20130305
  Receipt Date: 20140306
  Transmission Date: 20141002
  Serious: Yes (Other)
  Sender: FDA-Public Use
  Company Number: 163-21880-12111083

PATIENT
  Age: 60 Year
  Sex: Male

DRUGS (13)
  1. REVLIMID [Suspect]
     Indication: PLASMA CELL MYELOMA
     Dosage: 10 MG, 28 IN 28 D, PO
     Route: 048
     Dates: start: 20121005, end: 20121115
  2. AREDIA (PAMIDRONATE DISODIUM) [Concomitant]
  3. ASPIRIN (ACETYLSALICYLIC ACID) [Concomitant]
  4. ACYCLOVIR (ACICLOVIR) (ACICLOVIR) [Concomitant]
  5. ADVAIR DISKUS (SERETIDE MITE) (INHALANT) [Concomitant]
  6. ALEVE (NAPROXEX SODIUM) [Concomitant]
  7. COLCHICINE (COLCHICINE) [Concomitant]
  8. HYDROCHLOROTHIAZIDE (HYDROCHLOROTHIAZIDE) [Concomitant]
  9. LECITHIN (LECITHIN) [Concomitant]
  10. MVI (MVI) [Concomitant]
  11. SINGULAIR (MONTELUKAST SODIUM) TABLET [Concomitant]
  12. VITAMIN D3 (COLECALCIFEROL) [Concomitant]
  13. VITAMIN E (TOCOPHEROL) [Concomitant]

REACTIONS (3)
  - Cellulitis [None]
  - Malaise [None]
  - Gout [None]
